FAERS Safety Report 9850126 (Version 1)
Quarter: 2014Q1

REPORT INFORMATION
  Report Type: Spontaneous
  Country: US (occurrence: None)
  Receive Date: 20140124
  Receipt Date: 20140124
  Transmission Date: 20141002
  Serious: Yes (Other)
  Sender: FDA-Public Use
  Company Number: None

PATIENT
  Age: 69 Year
  Sex: Female
  Weight: 62.6 kg

DRUGS (11)
  1. GABAPENTIN [Suspect]
     Indication: INTERVERTEBRAL DISC DISORDER
     Dosage: 1 CAPSULE
     Route: 048
     Dates: start: 201309, end: 201401
  2. GABAPENTIN [Suspect]
     Indication: NEURALGIA
     Dosage: 1 CAPSULE
     Route: 048
     Dates: start: 201309, end: 201401
  3. HYDROCHLOROTHIAZIDE [Concomitant]
  4. CYMBALTA [Concomitant]
  5. HYDROCODON [Concomitant]
  6. APAP [Concomitant]
  7. PANTOPRAZOLE [Concomitant]
  8. XANAX [Concomitant]
  9. BENICAR [Concomitant]
  10. VIT E [Concomitant]
  11. BABY ASPIRIN [Concomitant]

REACTIONS (2)
  - Vision blurred [None]
  - Road traffic accident [None]
